FAERS Safety Report 16776487 (Version 1)
Quarter: 2019Q3

REPORT INFORMATION
  Report Type: Report from Study
  Country: US (occurrence: US)
  Receive Date: 20190905
  Receipt Date: 20190905
  Transmission Date: 20191005
  Serious: Yes (Hospitalization, Other)
  Sender: FDA-Public Use
  Company Number: US-GILEAD-2019-0426446

PATIENT
  Age: 42 Year
  Sex: Female

DRUGS (17)
  1. ADCIRCA [Concomitant]
     Active Substance: TADALAFIL
  2. ALBUTEROL SULFATE. [Concomitant]
     Active Substance: ALBUTEROL SULFATE
  3. LACTULOSE. [Concomitant]
     Active Substance: LACTULOSE
  4. TOPAMAX [Concomitant]
     Active Substance: TOPIRAMATE
  5. ELAVIL [ALLOPURINOL] [Concomitant]
     Active Substance: ALLOPURINOL
  6. SERTRALINE [Concomitant]
     Active Substance: SERTRALINE HYDROCHLORIDE
  7. CORTEF ACETATE [Concomitant]
     Active Substance: HYDROCORTISONE ACETATE
  8. POTASSIUM [Concomitant]
     Active Substance: POTASSIUM
  9. AMBRISENTAN [Suspect]
     Active Substance: AMBRISENTAN
     Indication: PULMONARY HYPERTENSION
     Dosage: 10 MG, QD
     Route: 065
  10. PRILOSEC [Concomitant]
     Active Substance: OMEPRAZOLE MAGNESIUM
  11. DILAUDID [Concomitant]
     Active Substance: HYDROMORPHONE HYDROCHLORIDE
  12. LASIX + K [Concomitant]
     Active Substance: FUROSEMIDE\POTASSIUM CHLORIDE
  13. CYCLOBENZAPRINE. [Concomitant]
     Active Substance: CYCLOBENZAPRINE
  14. DESMOPRESSINE A [Concomitant]
  15. FERROUS SULFATE. [Concomitant]
     Active Substance: FERROUS SULFATE
  16. LEVOTHYROXINE. [Concomitant]
     Active Substance: LEVOTHYROXINE
  17. SEROQUEL [Concomitant]
     Active Substance: QUETIAPINE FUMARATE

REACTIONS (4)
  - Dyspnoea [Not Recovered/Not Resolved]
  - Unevaluable event [Unknown]
  - Fluid retention [Unknown]
  - Intentional dose omission [Not Recovered/Not Resolved]

NARRATIVE: CASE EVENT DATE: 20190818
